FAERS Safety Report 13710080 (Version 1)
Quarter: 2017Q3

REPORT INFORMATION
  Report Type: Spontaneous
  Country: US (occurrence: US)
  Receive Date: 20170703
  Receipt Date: 20170703
  Transmission Date: 20171127
  Serious: No
  Sender: FDA-Public Use
  Company Number: US-TEVA-716304ACC

PATIENT
  Age: 59 Year
  Sex: Male
  Weight: 55.39 kg

DRUGS (2)
  1. LIDOCAINE TOPICAL 5% [Suspect]
     Active Substance: LIDOCAINE
     Route: 061
  2. FENTANYL. [Concomitant]
     Active Substance: FENTANYL

REACTIONS (4)
  - Wrong technique in product usage process [Unknown]
  - Euphoric mood [Unknown]
  - Product storage error [Unknown]
  - Feeling drunk [Unknown]
